FAERS Safety Report 4837160-4 (Version None)
Quarter: 2005Q4

REPORT INFORMATION
  Report Type: 
  Country: None (occurrence: None)
  Receive Date: 20051122
  Receipt Date: 20051109
  Transmission Date: 20060501
  Serious: Yes (Other)
  Sender: FDA-Public Use
  Company Number: 2005154206

PATIENT
  Age: 46 Year
  Sex: Female

DRUGS (8)
  1. GABAPENTIN [Suspect]
     Indication: DIABETIC NEUROPATHY
     Dosage: 1800 MG (600 MG, 3 IN 1 D), ORAL
     Route: 048
     Dates: start: 20050701, end: 20050101
  2. LYRICA [Suspect]
     Indication: DIABETIC NEUROPATHY
     Dosage: 300 MG (50 MG, 3 IN 1 D), ORAL
     Route: 048
     Dates: start: 20051001
  3. TOPAMAX [Suspect]
     Indication: DIABETIC NEUROPATHY
     Dosage: 50 MG (25 MG, 1 IN 1 D), ORAL
     Route: 048
     Dates: start: 20050101, end: 20050101
  4. VICODIN [Suspect]
     Indication: NEURALGIA
     Dosage: 40 MG (10 MG, 4 IN 1 D), ORAL
     Route: 048
  5. DIOVANE (VALSARTAN) [Concomitant]
  6. TOPROL-XL [Concomitant]
  7. DICLOFENAC SODIUM [Concomitant]
  8. BENTYL [Concomitant]

REACTIONS (13)
  - BURNING SENSATION [None]
  - CONDITION AGGRAVATED [None]
  - DIABETIC NEUROPATHY [None]
  - ELECTROPHORESIS PROTEIN ABNORMAL [None]
  - FEELING ABNORMAL [None]
  - INADEQUATE ANALGESIA [None]
  - MULTIPLE MYELOMA [None]
  - OVERDOSE [None]
  - PROTEIN TOTAL INCREASED [None]
  - SWELLING [None]
  - VISION BLURRED [None]
  - WEIGHT FLUCTUATION [None]
  - WEIGHT INCREASED [None]
